FAERS Safety Report 5037911-2 (Version None)
Quarter: 2006Q2

REPORT INFORMATION
  Report Type: 
  Country: None (occurrence: None)
  Receive Date: 20060613
  Receipt Date: 20060301
  Transmission Date: 20061013
  Serious: Yes (Other)
  Sender: FDA-Public Use
  Company Number: US-JNJFOC-20050804970

PATIENT
  Age: 46 Year
  Sex: Female

DRUGS (4)
  1. ORTHO EVRA [Suspect]
     Indication: DYSFUNCTIONAL UTERINE BLEEDING
     Dosage: TRANSDERMAL
     Route: 062
     Dates: start: 20030901, end: 20040101
  2. FISH OIL (FISH OIL) [Concomitant]
  3. LIPITOR [Concomitant]
  4. ACCUPRIL [Concomitant]

REACTIONS (4)
  - CEREBROVASCULAR ACCIDENT [None]
  - HEADACHE [None]
  - OFF LABEL USE [None]
  - THROMBOSIS [None]
